FAERS Safety Report 5915968-1 (Version None)
Quarter: 2008Q4

REPORT INFORMATION
  Report Type: 
  Country: None (occurrence: None)
  Receive Date: 20081013
  Receipt Date: 20081007
  Transmission Date: 20090506
  Serious: Yes (Other)
  Sender: FDA-Public Use
  Company Number: US-BAYER-200835113NA

PATIENT
  Sex: Female

DRUGS (3)
  1. MAGNEVIST [Suspect]
     Indication: NUCLEAR MAGNETIC RESONANCE IMAGING
     Dates: start: 20060620, end: 20060620
  2. MAGNEVIST [Suspect]
     Dates: start: 20070112, end: 20070112
  3. MAGNEVIST [Suspect]
     Dates: start: 20070503, end: 20070503

REACTIONS (9)
  - ALOPECIA [None]
  - ANXIETY [None]
  - EMOTIONAL DISTRESS [None]
  - GENERAL PHYSICAL HEALTH DETERIORATION [None]
  - INJURY [None]
  - NEPHROGENIC SYSTEMIC FIBROSIS [None]
  - PAIN [None]
  - SCAR [None]
  - SKIN DISORDER [None]
